FAERS Safety Report 10154743 (Version 1)
Quarter: 2014Q2

REPORT INFORMATION
  Report Type: Spontaneous
  Country: CA (occurrence: None)
  Receive Date: 20140505
  Receipt Date: 20140505
  Transmission Date: 20141212
  Serious: Yes (Disabling)
  Sender: FDA-Public Use
  Company Number: None

PATIENT
  Age: 29 Year
  Sex: Female
  Weight: 81.65 kg

DRUGS (2)
  1. ABILIFY 15MG [Suspect]
     Indication: BIPOLAR DISORDER
     Route: 048
     Dates: start: 20140120, end: 20140301
  2. ABILIFY 15MG [Suspect]
     Route: 048
     Dates: start: 20140120, end: 20140301

REACTIONS (2)
  - Vision blurred [None]
  - Visual impairment [None]
